FAERS Safety Report 13210590 (Version 1)
Quarter: 2017Q1

REPORT INFORMATION
  Report Type: Spontaneous
  Country: NL (occurrence: NL)
  Receive Date: 20170210
  Receipt Date: 20170210
  Transmission Date: 20170428
  Serious: Yes (Hospitalization)
  Sender: FDA-Public Use
  Company Number: NL-TEVA-738565ACC

PATIENT
  Age: 12 Year
  Sex: Male

DRUGS (1)
  1. AMOXICILLIN. [Suspect]
     Active Substance: AMOXICILLIN
     Indication: PNEUMONIA
     Dosage: STRENGTH AND DOSAGE NOT KNOWN
     Route: 048
     Dates: start: 20160830, end: 20160901

REACTIONS (3)
  - Stevens-Johnson syndrome [Recovered/Resolved]
  - Dehydration [Recovered/Resolved]
  - Stomatitis [Recovered/Resolved]

NARRATIVE: CASE EVENT DATE: 20160901
